FAERS Safety Report 6298893-9 (Version None)
Quarter: 2009Q3

REPORT INFORMATION
  Report Type: 
  Country: None (occurrence: None)
  Receive Date: 20090804
  Receipt Date: 20090722
  Transmission Date: 20100115
  Serious: Yes (Hospitalization)
  Sender: FDA-Public Use
  Company Number: 8043976

PATIENT
  Age: 51 Year
  Sex: Female

DRUGS (7)
  1. CDP870 [Suspect]
     Indication: RHEUMATOID ARTHRITIS
     Dosage: 400 MG /M SC
     Route: 058
     Dates: start: 20030811
  2. METHOTREXATE [Concomitant]
  3. FOLIC ACID [Concomitant]
  4. LANSOPRAZOLE [Concomitant]
  5. PARACETAMOL [Concomitant]
  6. MELOXICAM [Concomitant]
  7. FERROUS SULFATE TAB [Concomitant]

REACTIONS (11)
  - ARTHRALGIA [None]
  - ATELECTASIS [None]
  - CHOLELITHIASIS [None]
  - CONDITION AGGRAVATED [None]
  - DISORIENTATION [None]
  - HEART RATE IRREGULAR [None]
  - LOWER RESPIRATORY TRACT INFECTION [None]
  - MALAISE [None]
  - PALPITATIONS [None]
  - PULMONARY OEDEMA [None]
  - RHEUMATOID ARTHRITIS [None]
